FAERS Safety Report 9119782 (Version 1)
Quarter: 2013Q1

REPORT INFORMATION
  Report Type: Spontaneous
  Country: SE (occurrence: None)
  Receive Date: 20130130
  Receipt Date: 20130130
  Transmission Date: 20140127
  Serious: Yes (Other)
  Sender: FDA-Public Use
  Company Number: 2013-01126

PATIENT
  Age: 84 Year
  Sex: Male

DRUGS (2)
  1. SPIRONOLACTONE [Suspect]
  2. DIGOXIN [Suspect]

REACTIONS (2)
  - Fatigue [None]
  - Unevaluable event [None]
